FAERS Safety Report 6812859-9 (Version None)
Quarter: 2010Q3

REPORT INFORMATION
  Report Type: 
  Country: None (occurrence: None)
  Receive Date: 20100701
  Receipt Date: 20100628
  Transmission Date: 20110219
  Serious: Yes (Hospitalization)
  Sender: FDA-Public Use
  Company Number: US-ASTRAZENECA-2010SE30071

PATIENT
  Sex: Male

DRUGS (6)
  1. PULMICORT RESPULES [Suspect]
     Indication: DYSPNOEA
     Route: 055
     Dates: start: 20091101, end: 20100201
  2. PULMICORT RESPULES [Suspect]
     Route: 055
     Dates: start: 20100301
  3. ALBUTEROL [Concomitant]
  4. IPRATROPIUM [Concomitant]
  5. CALAN [Concomitant]
  6. QUININE [Concomitant]

REACTIONS (6)
  - ASTHENOPIA [None]
  - CARBON DIOXIDE ABNORMAL [None]
  - HYPOACUSIS [None]
  - HYPOREFLEXIA [None]
  - OXYGEN SATURATION DECREASED [None]
  - PNEUMONIA [None]
